FAERS Safety Report 7869656-5 (Version None)
Quarter: 2011Q4

REPORT INFORMATION
  Report Type: 
  Country: None (occurrence: None)
  Receive Date: 20111028
  Receipt Date: 20110106
  Transmission Date: 20120403
  Serious: No
  Sender: FDA-Public Use
  Company Number: US-AMGEN-USASP2011000818

PATIENT
  Age: 46 Year
  Sex: Female

DRUGS (4)
  1. PLAQUENIL [Concomitant]
     Dates: start: 20101102
  2. ENBREL [Suspect]
     Indication: PSORIASIS
  3. ENBREL [Suspect]
     Indication: RHEUMATOID ARTHRITIS
     Dosage: 50 MG, QWK
     Dates: start: 20101223
  4. MINOCIN [Concomitant]
     Dates: start: 20101102

REACTIONS (7)
  - MEMORY IMPAIRMENT [None]
  - INJECTION SITE SWELLING [None]
  - ARTHRALGIA [None]
  - SYNOVITIS [None]
  - INJECTION SITE ERYTHEMA [None]
  - RHEUMATOID ARTHRITIS [None]
  - DRUG INEFFECTIVE [None]
